FAERS Safety Report 24762856 (Version 2)
Quarter: 2024Q4

REPORT INFORMATION
  Report Type: Report from Study
  Country: DE (occurrence: DE)
  Receive Date: 20241222
  Receipt Date: 20241225
  Transmission Date: 20250115
  Serious: Yes (Other)
  Sender: JOHNSON AND JOHNSON
  Company Number: DE-JNJFOC-20241251631

PATIENT
  Age: 25 Year
  Sex: Male

DRUGS (2)
  1. SPRAVATO [Suspect]
     Active Substance: ESKETAMINE
     Indication: Depression
     Dosage: 56 MG (2 DEVICES), 3 TOTAL DOSES (23-JAN-2024, 26-JAN-2024, 29-JAN-2024)
     Route: 045
     Dates: start: 20240123, end: 20240129
  2. SPRAVATO [Suspect]
     Active Substance: ESKETAMINE
     Dosage: 84 MG (3 DEVICES), 25 TOTAL DOSES (01-FEB-2024, 06-FEB-2024, 08-FEB-2024, 13-FEB-2024, 15-FEB-2024,
     Route: 045
     Dates: start: 20240201, end: 20240709

REACTIONS (1)
  - Diabetes mellitus [Not Recovered/Not Resolved]

NARRATIVE: CASE EVENT DATE: 20240831
